FAERS Safety Report 24978747 (Version 1)
Quarter: 2025Q1

REPORT INFORMATION
  Report Type: Spontaneous
  Country: US (occurrence: US)
  Receive Date: 20250218
  Receipt Date: 20250218
  Transmission Date: 20250409
  Serious: Yes (Hospitalization, Other)
  Sender: APOTEX
  Company Number: US-APOTEX-2025AP002167

PATIENT
  Sex: Male

DRUGS (1)
  1. SOTALOL [Suspect]
     Active Substance: SOTALOL
     Indication: Product used for unknown indication
     Route: 048

REACTIONS (8)
  - Overdose [Unknown]
  - Toxicity to various agents [Unknown]
  - Tonic clonic movements [Unknown]
  - Ventricular fibrillation [Recovered/Resolved]
  - Bradycardia [Recovered/Resolved]
  - Hypotension [Recovering/Resolving]
  - Ventricular tachycardia [Recovered/Resolved]
  - Electrocardiogram QT prolonged [Recovered/Resolved]
